FAERS Safety Report 14233799 (Version 1)
Quarter: 2017Q4

REPORT INFORMATION
  Report Type: Spontaneous
  Country: BR (occurrence: BR)
  Receive Date: 20171129
  Receipt Date: 20171129
  Transmission Date: 20180321
  Serious: Yes (Other)
  Sender: FDA-Public Use
  Company Number: BR-PFIZER INC-2017508050

PATIENT
  Sex: Female

DRUGS (1)
  1. XALATAN [Suspect]
     Active Substance: LATANOPROST
     Dosage: UNK
     Route: 047

REACTIONS (7)
  - Foot fracture [Recovered/Resolved]
  - Fall [Recovered/Resolved]
  - Leiomyoma [Recovered/Resolved]
  - Ankle fracture [Recovered/Resolved]
  - Lower limb fracture [Recovered/Resolved]
  - Breast injury [Recovered/Resolved]
  - Rib fracture [Recovered/Resolved]
